FAERS Safety Report 13873353 (Version 1)
Quarter: 2017Q3

REPORT INFORMATION
  Report Type: Spontaneous
  Country: US (occurrence: None)
  Receive Date: 20170814
  Receipt Date: 20170814
  Transmission Date: 20171127
  Serious: No
  Sender: FDA-Public Use
  Company Number: None

PATIENT
  Age: 59 Year
  Sex: Female

DRUGS (2)
  1. SOMATULINE DEPOT [Suspect]
     Active Substance: LANREOTIDE ACETATE
     Indication: HYPOTHALAMO-PITUITARY DISORDER
     Dosage: 0.2ML 28 DAYS SUBCUTANEOUSLY
     Route: 058
     Dates: start: 20170419, end: 20170502
  2. SOMATULINE DEPOT [Suspect]
     Active Substance: LANREOTIDE ACETATE
     Indication: ACROMEGALY
     Dosage: 0.2ML 28 DAYS SUBCUTANEOUSLY
     Route: 058
     Dates: start: 20170419, end: 20170502

REACTIONS (1)
  - Pancreatitis [None]

NARRATIVE: CASE EVENT DATE: 20170419
